FAERS Safety Report 4530705-3 (Version None)
Quarter: 2004Q4

REPORT INFORMATION
  Report Type: 
  Country: None (occurrence: None)
  Receive Date: 20041217
  Receipt Date: 20041027
  Transmission Date: 20050328
  Serious: Yes (Hospitalization)
  Sender: FDA-Public Use
  Company Number: JP-GLAXOSMITHKLINE-B0350094A

PATIENT
  Age: 67 Year
  Sex: Male

DRUGS (8)
  1. PAXIL [Suspect]
     Indication: DEPRESSION
     Dosage: 10MG PER DAY
     Route: 048
     Dates: start: 20040825, end: 20041013
  2. BLOPRESS [Concomitant]
     Indication: HYPERTENSION
     Dosage: 8MG PER DAY
     Route: 048
     Dates: start: 20040806
  3. CARDENALIN [Concomitant]
     Indication: HYPERTENSION
     Dosage: 1MG PER DAY
     Route: 048
     Dates: start: 20040806
  4. HARNAL [Concomitant]
     Indication: BENIGN PROSTATIC HYPERPLASIA
     Dosage: .2MG PER DAY
     Route: 048
     Dates: start: 20040806
  5. BUP-4 [Concomitant]
     Indication: NEUROGENIC BLADDER
     Dosage: 40MG PER DAY
     Route: 048
     Dates: start: 20040806
  6. GASTER D [Concomitant]
     Indication: GASTRITIS
     Dosage: 10MG TWICE PER DAY
     Route: 048
     Dates: start: 20040806
  7. MAGLAX [Concomitant]
     Indication: CONSTIPATION
     Dosage: 250MG THREE TIMES PER DAY
     Route: 048
     Dates: start: 20040806
  8. TECIPUL [Concomitant]
     Dosage: .99UNIT PER DAY
     Route: 048
     Dates: start: 20041021, end: 20041025

REACTIONS (5)
  - ALANINE AMINOTRANSFERASE INCREASED [None]
  - AMNESIA [None]
  - BLOOD ALKALINE PHOSPHATASE INCREASED [None]
  - COMMUNICATION DISORDER [None]
  - HEPATIC FUNCTION ABNORMAL [None]
